FAERS Safety Report 9256981 (Version 2)
Quarter: 2013Q3

REPORT INFORMATION
  Report Type: Spontaneous
  Country: GB (occurrence: None)
  Receive Date: 20130424
  Receipt Date: 20130806
  Transmission Date: 20140515
  Serious: Yes (Other)
  Sender: FDA-Public Use
  Company Number: 1678495

PATIENT
  Age: 64 Year
  Sex: Female

DRUGS (5)
  1. PAMIDRONIC ACID [Suspect]
     Indication: ANKLE FRACTURE
     Dosage: INTRAVENOUS (NOT OTHERWISE SPECIFIED)?
     Route: 042
  2. ZOLEDRONIC ACID [Suspect]
     Indication: ANKLE FRACTURE
     Dosage: INTRAVENOUS (NOT OTHERWISE SPECIFIED)?
     Route: 042
  3. OMEPRAZOLE [Concomitant]
  4. CALCICHEW D3 [Concomitant]
  5. IBUPROFEN [Concomitant]

REACTIONS (2)
  - Femur fracture [None]
  - Atypical femur fracture [None]
